FAERS Safety Report 6235016-6 (Version None)
Quarter: 2009Q2

REPORT INFORMATION
  Report Type: 
  Country: None (occurrence: None)
  Receive Date: 20090618
  Receipt Date: 20090605
  Transmission Date: 20091009
  Serious: Yes (Life-Threatening, Hospitalization, Disabling, Other)
  Sender: FDA-Public Use
  Company Number: FR-ELI_LILLY_AND_COMPANY-FR200906001294

PATIENT
  Sex: Male

DRUGS (3)
  1. ZYPREXA [Suspect]
     Route: 048
     Dates: end: 20090309
  2. ZOLOFT [Concomitant]
  3. ATARAX [Concomitant]

REACTIONS (7)
  - APALLIC SYNDROME [None]
  - CARDIAC ARREST [None]
  - COMA [None]
  - PNEUMONIA ASPIRATION [None]
  - PNEUMONIA KLEBSIELLA [None]
  - PULMONARY EMBOLISM [None]
  - THROMBOSIS [None]
